FAERS Safety Report 13699176 (Version 1)
Quarter: 2017Q2

REPORT INFORMATION
  Report Type: Spontaneous
  Country: US (occurrence: US)
  Receive Date: 20170628
  Receipt Date: 20170628
  Transmission Date: 20170830
  Serious: No
  Sender: FDA-Public Use
  Company Number: US-LUNDBECK-DKLU2032803

PATIENT
  Age: 45 Year
  Sex: Female

DRUGS (1)
  1. ONFI [Suspect]
     Active Substance: CLOBAZAM
     Indication: GENERALISED TONIC-CLONIC SEIZURE
     Route: 048
     Dates: start: 201704

REACTIONS (3)
  - Viral infection [Unknown]
  - Migraine [Unknown]
  - Vomiting [Unknown]

NARRATIVE: CASE EVENT DATE: 201706
